FAERS Safety Report 23106304 (Version 1)
Quarter: 2023Q4

REPORT INFORMATION
  Report Type: Spontaneous
  Country: US (occurrence: US)
  Receive Date: 20231025
  Receipt Date: 20231025
  Transmission Date: 20240110
  Serious: No
  Sender: FDA-Public Use
  Company Number: US-FreseniusKabi-FK202316367

PATIENT

DRUGS (2)
  1. NESACAINE MPF [Suspect]
     Active Substance: CHLOROPROCAINE HYDROCHLORIDE
     Indication: Shoulder dystocia
     Dosage: 600MG/20ML (30MG/ML)?DOSAGE: 45MG TO 60 MG?FREQUENCY: ONCE
     Route: 008
  2. NESACAINE MPF [Suspect]
     Active Substance: CHLOROPROCAINE HYDROCHLORIDE
     Indication: Perineal injury

REACTIONS (1)
  - Drug ineffective [Unknown]
